FAERS Safety Report 4868756-1 (Version None)
Quarter: 2005Q4

REPORT INFORMATION
  Report Type: 
  Country: None (occurrence: None)
  Receive Date: 20051223
  Receipt Date: 20051214
  Transmission Date: 20060501
  Serious: Yes (Death, Hospitalization)
  Sender: FDA-Public Use
  Company Number: 2005JP001799

PATIENT
  Age: 70 Year
  Sex: Male
  Weight: 58.8 kg

DRUGS (6)
  1. FUNGUARD (MICAFUNGIN) INJECTION [Suspect]
     Indication: FUNGAL INFECTION
     Dosage: 150.00 MG, UID/QD, IV DRIP
     Route: 041
     Dates: start: 20050910, end: 20050912
  2. KEITEN (CEFPIROME SULFATE) INJECTION [Suspect]
     Indication: INFECTION
     Dosage: 2.00 G, BID, IV DRIP
     Route: 041
     Dates: start: 20050907, end: 20050914
  3. GASTER (FAMOTIDINE) ORODISPERSABLE CR TABLET [Concomitant]
  4. BAKTAR (SULFAMETHOXAZOLE, TRIMETHOPRIM) PER ORAL NOS [Concomitant]
  5. CRAVIT (LEVOFLOXACIN) PER ORAL NOS [Concomitant]
  6. SAXIZON (HYDROCORTISONE SODIUM SUCCINATE) INJECTION [Concomitant]

REACTIONS (12)
  - ALANINE AMINOTRANSFERASE INCREASED [None]
  - ASPARTATE AMINOTRANSFERASE INCREASED [None]
  - BLOOD BETA-D-GLUCAN INCREASED [None]
  - C-REACTIVE PROTEIN INCREASED [None]
  - CEREBRAL HAEMORRHAGE [None]
  - DISEASE PROGRESSION [None]
  - HEPATIC FUNCTION ABNORMAL [None]
  - JAUNDICE [None]
  - LIVER DISORDER [None]
  - MALIGNANT NEOPLASM PROGRESSION [None]
  - PANCYTOPENIA [None]
  - PYREXIA [None]
